FAERS Safety Report 6024549-3 (Version None)
Quarter: 2008Q4

REPORT INFORMATION
  Report Type: 
  Country: None (occurrence: None)
  Receive Date: 20081231
  Receipt Date: 20081016
  Transmission Date: 20090506
  Serious: Yes (Other)
  Sender: FDA-Public Use
  Company Number: US-BRISTOL-MYERS SQUIBB COMPANY-14372650

PATIENT
  Age: 73 Year
  Sex: Male

DRUGS (2)
  1. ORENCIA [Suspect]
     Dosage: 1 DOSAGE FORM=POSSIBLY 750MG, 3RD INFUSION
     Dates: start: 20080930, end: 20080930
  2. NEURONTIN [Concomitant]

REACTIONS (5)
  - FEELING ABNORMAL [None]
  - HEADACHE [None]
  - HOT FLUSH [None]
  - RESPIRATORY RATE INCREASED [None]
  - TREMOR [None]
